FAERS Safety Report 4956280-7 (Version None)
Quarter: 2006Q1

REPORT INFORMATION
  Report Type: 
  Country: None (occurrence: None)
  Receive Date: 20060323
  Receipt Date: 20060307
  Transmission Date: 20060701
  Serious: Yes (Hospitalization, Other)
  Sender: FDA-Public Use
  Company Number: DE200603001803

PATIENT
  Age: 78 Year
  Sex: Female

DRUGS (7)
  1. FORTEO [Suspect]
     Indication: OSTEOPOROSIS
     Dates: start: 20050401, end: 20060201
  2. FORTEO [Concomitant]
  3. OXYCODONE HCL [Concomitant]
  4. EUNERPAN (MELPERONE HYDROCHLORIDE) [Concomitant]
  5. PANTOZOL /GFR/(PANTOPAZOLE SODIUM) [Concomitant]
  6. L-THYROXIN-NATRIUM (LEVOTHYROXINE SODIUM) [Concomitant]
  7. BELOC-ZOC MITE (METOPROLOL SUCCINATE) [Concomitant]

REACTIONS (5)
  - AGGRESSION [None]
  - CONFUSIONAL STATE [None]
  - ESCHERICHIA URINARY TRACT INFECTION [None]
  - HALLUCINATION [None]
  - HYPOTENSION [None]
